FAERS Safety Report 7560662-7 (Version None)
Quarter: 2011Q2

REPORT INFORMATION
  Report Type: 
  Country: None (occurrence: None)
  Receive Date: 20110621
  Receipt Date: 20110614
  Transmission Date: 20111010
  Serious: No
  Sender: FDA-Public Use
  Company Number: US-PFIZER INC-2011110043

PATIENT
  Sex: Male
  Weight: 27 kg

DRUGS (6)
  1. ZOLOFT [Concomitant]
     Dosage: UNK
  2. MILURIT [Concomitant]
     Dosage: UNK
  3. FLONASE [Concomitant]
     Dosage: UNK
  4. MONTELUKAST [Concomitant]
  5. STRATTERA [Concomitant]
     Dosage: UNK
  6. GENOTROPIN [Suspect]
     Indication: GROWTH HORMONE DEFICIENCY
     Dosage: 1.2 MG, 1X/DAY (6 DAYS PER WEEK)
     Route: 058
     Dates: start: 20110517, end: 20110522

REACTIONS (2)
  - INCORRECT DOSE ADMINISTERED [None]
  - INJECTION SITE PAIN [None]
